FAERS Safety Report 16307630 (Version 1)
Quarter: 2019Q2

REPORT INFORMATION
  Report Type: Spontaneous
  Country: US (occurrence: US)
  Receive Date: 20190514
  Receipt Date: 20190514
  Transmission Date: 20190711
  Serious: No
  Sender: FDA-Public Use
  Company Number: US-CONCORDIA PHARMACEUTICALS INC.-GSH201903-000761

PATIENT
  Age: 63 Year
  Sex: Female

DRUGS (2)
  1. PARNATE [Suspect]
     Active Substance: TRANYLCYPROMINE SULFATE
     Indication: DEPRESSION
     Dosage: 10MG TABLETS BY MOUTH THREE TIMES DAILY
     Route: 048
     Dates: start: 20180819
  2. PARNATE [Suspect]
     Active Substance: TRANYLCYPROMINE SULFATE
     Dosage: INCREASED DOSE FROM 10MG TABLET BY MOUTH THREE TIMES DAILY TO 20MG BY MOUTH AT BREAKFAST AND 10MG BY
     Route: 048

REACTIONS (1)
  - Blood glucose decreased [Recovered/Resolved]

NARRATIVE: CASE EVENT DATE: 20180905
